FAERS Safety Report 13792206 (Version 1)
Quarter: 2017Q3

REPORT INFORMATION
  Report Type: Spontaneous
  Country: US (occurrence: US)
  Receive Date: 20170725
  Receipt Date: 20170725
  Transmission Date: 20171127
  Serious: No
  Sender: FDA-Public Use
  Company Number: US-ROCHE-1951365

PATIENT
  Sex: Male

DRUGS (1)
  1. ESBRIET [Suspect]
     Active Substance: PIRFENIDONE
     Indication: PRODUCT USED FOR UNKNOWN INDICATION
     Route: 048
     Dates: start: 201704

REACTIONS (5)
  - Pain [Unknown]
  - Peripheral swelling [Unknown]
  - Lyme disease [Unknown]
  - Rash [Recovered/Resolved]
  - Limb discomfort [Unknown]
